FAERS Safety Report 11878811 (Version 1)
Quarter: 2015Q4

REPORT INFORMATION
  Report Type: Spontaneous
  Country: US (occurrence: US)
  Receive Date: 20151230
  Receipt Date: 20151230
  Transmission Date: 20160305
  Serious: Yes (Other)
  Sender: FDA-Public Use
  Company Number: US-BAYER-2015-493468

PATIENT
  Age: 74 Year
  Sex: Female

DRUGS (16)
  1. ADEMPAS [Suspect]
     Active Substance: RIOCIGUAT
     Indication: PRODUCT USED FOR UNKNOWN INDICATION
     Dosage: UNK
     Route: 065
  2. BENADRYL [Concomitant]
     Active Substance: DIPHENHYDRAMINE HYDROCHLORIDE
  3. LETAIRIS [Suspect]
     Active Substance: AMBRISENTAN
     Indication: PULMONARY ARTERIAL HYPERTENSION
     Dosage: 5 MG, QD
     Route: 065
     Dates: start: 20150820
  4. LETAIRIS [Suspect]
     Active Substance: AMBRISENTAN
     Indication: PULMONARY ARTERIAL HYPERTENSION
     Dosage: 2.5 MG, QD
     Dates: start: 2014
  5. BETOPTIC-S [Concomitant]
     Active Substance: BETAXOLOL HYDROCHLORIDE
  6. VITAMIN E [Concomitant]
     Active Substance: .ALPHA.-TOCOPHEROL
  7. ALPHAGAN P [Concomitant]
     Active Substance: BRIMONIDINE TARTRATE
  8. LETAIRIS [Suspect]
     Active Substance: AMBRISENTAN
     Indication: PULMONARY ARTERIAL HYPERTENSION
     Dosage: 5 MG, QD
     Dates: start: 20140926
  9. COD LIVER OIL [Concomitant]
     Active Substance: COD LIVER OIL
  10. ENULOSE [Concomitant]
     Active Substance: LACTULOSE
  11. ASPIRIN CARDIO [Concomitant]
     Active Substance: ASPIRIN
  12. RENAGEL [Concomitant]
     Active Substance: SEVELAMER HYDROCHLORIDE
  13. REFRESH PLUS [CARMELLOSE SODIUM] [Concomitant]
  14. ZYRTEC [CETIRIZINE HYDROCHLORIDE] [Concomitant]
  15. PREDNISONE. [Concomitant]
     Active Substance: PREDNISONE
  16. PLAVIX [Concomitant]
     Active Substance: CLOPIDOGREL BISULFATE

REACTIONS (4)
  - Visual acuity reduced [Unknown]
  - Blood pressure decreased [Unknown]
  - Blood pressure decreased [Unknown]
  - Nasal congestion [Unknown]

NARRATIVE: CASE EVENT DATE: 20141121
